FAERS Safety Report 21751969 (Version 1)
Quarter: 2022Q4

REPORT INFORMATION
  Report Type: Spontaneous
  Country: US (occurrence: US)
  Receive Date: 20221220
  Receipt Date: 20221220
  Transmission Date: 20230113
  Serious: Yes (Hospitalization)
  Sender: FDA-Public Use
  Company Number: US-BRISTOL-MYERS SQUIBB COMPANY-2022-155375

PATIENT
  Age: 70 Year
  Sex: Male
  Weight: 49.9 kg

DRUGS (1)
  1. THALOMID [Suspect]
     Active Substance: THALIDOMIDE
     Indication: Aphthous ulcer
     Dosage: DOSE : 50 MG;     FREQ : DAILY
     Route: 048
     Dates: start: 20220914

REACTIONS (2)
  - Hospitalisation [Unknown]
  - Off label use [Unknown]
